FAERS Safety Report 14056915 (Version 2)
Quarter: 2017Q4

REPORT INFORMATION
  Report Type: Spontaneous
  Country: KR (occurrence: KR)
  Receive Date: 20171006
  Receipt Date: 20171020
  Transmission Date: 20180321
  Serious: Yes (Hospitalization, Other)
  Sender: FDA-Public Use
  Company Number: KR-009507513-1710KOR001128

PATIENT
  Age: 56 Year
  Sex: Male

DRUGS (2)
  1. NOXAFIL [Suspect]
     Active Substance: POSACONAZOLE
     Indication: ANTIFUNGAL PROPHYLAXIS
     Dosage: 300 MG, TWICE A DAY
     Route: 048
     Dates: start: 20170708, end: 20170708
  2. NOXAFIL [Suspect]
     Active Substance: POSACONAZOLE
     Dosage: 300 MG, ONCE A DAY
     Route: 048
     Dates: start: 20170709, end: 20170721

REACTIONS (8)
  - Red blood cell count decreased [Unknown]
  - Memory impairment [Not Recovered/Not Resolved]
  - White blood cell count decreased [Unknown]
  - Cerebral disorder [Not Recovered/Not Resolved]
  - Alanine aminotransferase increased [Unknown]
  - Haematocrit decreased [Unknown]
  - Platelet count decreased [Unknown]
  - Cerebral artery stenosis [Not Recovered/Not Resolved]

NARRATIVE: CASE EVENT DATE: 201707
